FAERS Safety Report 13167879 (Version 1)
Quarter: 2017Q1

REPORT INFORMATION
  Report Type: Spontaneous
  Country: JP (occurrence: JP)
  Receive Date: 20170131
  Receipt Date: 20170131
  Transmission Date: 20170428
  Serious: Yes (Other)
  Sender: FDA-Public Use
  Company Number: JP-PFIZER INC-2017034774

PATIENT
  Age: 43 Year
  Sex: Male

DRUGS (3)
  1. LOXONIN [Suspect]
     Active Substance: LOXOPROFEN SODIUM
     Dosage: UNK
     Route: 048
  2. LEXOTAN [Suspect]
     Active Substance: BROMAZEPAM
     Dosage: UNK
     Route: 048
  3. JZOLOFT [Suspect]
     Active Substance: SERTRALINE HYDROCHLORIDE
     Dosage: UNK
     Route: 048

REACTIONS (4)
  - Herpes zoster [Unknown]
  - Rash generalised [Unknown]
  - Eczema [Unknown]
  - Mechanical ileus [Unknown]
